FAERS Safety Report 24988194 (Version 4)
Quarter: 2025Q2

REPORT INFORMATION
  Report Type: Spontaneous
  Country: CN (occurrence: CN)
  Receive Date: 20250220
  Receipt Date: 20250512
  Transmission Date: 20250716
  Serious: Yes (Hospitalization, Other)
  Sender: NOVO NORDISK
  Company Number: CN-NOVOPROD-1372620

PATIENT
  Age: 74 Year
  Sex: Male

DRUGS (3)
  1. INSULIN ASPART [Suspect]
     Active Substance: INSULIN ASPART
     Indication: Diabetes mellitus
  2. TRESIBA [Suspect]
     Active Substance: INSULIN DEGLUDEC
     Indication: Diabetes mellitus
     Dosage: 32 IU, QD
  3. INSULIN GLARGINE [Suspect]
     Active Substance: INSULIN GLARGINE
     Indication: Diabetes mellitus
     Dosage: 32 IU, QD

REACTIONS (6)
  - Cataract operation [Recovered/Resolved]
  - Eye haemorrhage [Recovered/Resolved]
  - Blood glucose increased [Recovered/Resolved]
  - Device dispensing error [Unknown]
  - Device delivery system issue [Unknown]
  - Product quality issue [Unknown]
